FAERS Safety Report 8042785-1 (Version None)
Quarter: 2012Q1

REPORT INFORMATION
  Report Type: 
  Country: None (occurrence: None)
  Receive Date: 20120112
  Receipt Date: 20120111
  Transmission Date: 20120608
  Serious: Yes (Hospitalization, Disabling, Other)
  Sender: FDA-Public Use
  Company Number: FI-ROCHE-1029332

PATIENT
  Sex: Female

DRUGS (8)
  1. ATACAND HCT [Concomitant]
     Dosage: 16 MG / 12.5 MG
     Route: 048
  2. MOXONIDIN [Concomitant]
     Dosage: DRUG : MOXONIDIN ACTAVIS
     Route: 048
  3. AMARYL [Concomitant]
     Route: 048
  4. BONIVA [Suspect]
     Indication: OSTEOPOROSIS
     Route: 048
  5. SIMVASTATIN [Concomitant]
     Route: 048
  6. FURESIS [Concomitant]
     Route: 048
  7. KALCIPOS-D [Concomitant]
     Dosage: FORM:CHEWABLE TABLET, 400 IU
     Route: 048
  8. PRIMASPAN [Concomitant]
     Dosage: GASTRO-RESISTASNT TABLET
     Route: 048

REACTIONS (2)
  - FEMUR FRACTURE [None]
  - PAIN IN EXTREMITY [None]
